FAERS Safety Report 5871871-7 (Version None)
Quarter: 2008Q3

REPORT INFORMATION
  Report Type: 
  Country: None (occurrence: None)
  Receive Date: 20080904
  Receipt Date: 20080904
  Transmission Date: 20090109
  Serious: Yes (Other)
  Sender: FDA-Public Use
  Company Number: None

PATIENT
  Age: 66 Year
  Sex: Female
  Weight: 81.6475 kg

DRUGS (2)
  1. IMIQUIMOD [Suspect]
     Indication: HYPERKERATOSIS
     Dosage: TINY DAB EVERY SECOND DAY CUTANEOUS
     Route: 003
     Dates: start: 20080801, end: 20080901
  2. IMIQUIMOD [Suspect]
     Indication: PRECANCEROUS SKIN LESION
     Dosage: TINY DAB EVERY SECOND DAY CUTANEOUS
     Route: 003
     Dates: start: 20080801, end: 20080901

REACTIONS (7)
  - ACNE [None]
  - FATIGUE [None]
  - MYALGIA [None]
  - NEUROPATHY PERIPHERAL [None]
  - RASH ERYTHEMATOUS [None]
  - SINUSITIS [None]
  - SWELLING FACE [None]
